FAERS Safety Report 7389943-7 (Version None)
Quarter: 2011Q2

REPORT INFORMATION
  Report Type: 
  Country: None (occurrence: None)
  Receive Date: 20110401
  Receipt Date: 20110323
  Transmission Date: 20111010
  Serious: Yes (Other)
  Sender: FDA-Public Use
  Company Number: US-ASTRAZENECA-2011SE13298

PATIENT
  Sex: Female

DRUGS (1)
  1. CRESTOR [Suspect]
     Route: 048

REACTIONS (8)
  - INFLUENZA [None]
  - PAIN IN EXTREMITY [None]
  - MYALGIA [None]
  - NAUSEA [None]
  - BREAST CANCER [None]
  - AMNESIA [None]
  - MALAISE [None]
  - ASTHENIA [None]
